FAERS Safety Report 9405651 (Version 1)
Quarter: 2013Q3

REPORT INFORMATION
  Report Type: Spontaneous
  Country: US (occurrence: US)
  Receive Date: 20130717
  Receipt Date: 20130717
  Transmission Date: 20140515
  Serious: Yes (Life-Threatening, Other)
  Sender: FDA-Public Use
  Company Number: CHPA2013US011223

PATIENT
  Age: 49 Year
  Sex: Female

DRUGS (1)
  1. GAS-X CHEWABLE TABLETS PEPPERMINT CREME [Suspect]
     Indication: FLATULENCE
     Dosage: UNK, UNK
     Route: 048

REACTIONS (5)
  - Abdominal discomfort [Not Recovered/Not Resolved]
  - Asthma [Unknown]
  - Flatulence [Not Recovered/Not Resolved]
  - Disease recurrence [Not Recovered/Not Resolved]
  - Nausea [Not Recovered/Not Resolved]
